FAERS Safety Report 20597298 (Version 1)
Quarter: 2022Q1

REPORT INFORMATION
  Report Type: Spontaneous
  Country: CA (occurrence: CA)
  Receive Date: 20220315
  Receipt Date: 20220315
  Transmission Date: 20220423
  Serious: Yes (Other)
  Sender: FDA-Public Use
  Company Number: CA-PFIZER INC-202200381428

PATIENT
  Age: 70 Year
  Sex: Female

DRUGS (4)
  1. HYDROMORPHONE HYDROCHLORIDE [Suspect]
     Active Substance: HYDROMORPHONE HYDROCHLORIDE
     Dosage: 3 MG, 1X/DAY
     Route: 048
  2. GRAVOL [Suspect]
     Active Substance: DIMENHYDRINATE
     Indication: Sleep disorder
     Route: 065
  3. MELATONIN [Suspect]
     Active Substance: MELATONIN
     Indication: Sleep disorder
     Route: 065
  4. CANNABIDIOL [Suspect]
     Active Substance: CANNABIDIOL
     Indication: Pain
     Dosage: 1 ML, 1X/DAY
     Route: 048

REACTIONS (2)
  - Hallucination, visual [Recovered/Resolved]
  - Poor quality sleep [Recovered/Resolved]
